FAERS Safety Report 5571748-0 (Version None)
Quarter: 2007Q4

REPORT INFORMATION
  Report Type: 
  Country: None (occurrence: None)
  Receive Date: 20071221
  Receipt Date: 20071214
  Transmission Date: 20080405
  Serious: Yes (Other)
  Sender: FDA-Public Use
  Company Number: B0466217A

PATIENT
  Sex: Male

DRUGS (6)
  1. PAROXETINE HCL [Suspect]
     Indication: DRUG USE FOR UNKNOWN INDICATION
     Route: 065
  2. ALCOHOL [Suspect]
  3. ZIMOVANE [Concomitant]
  4. LANSOPRAZOLE [Concomitant]
     Dosage: 30MG TWICE PER DAY
  5. TEMAZEPAM [Concomitant]
  6. DOTHIEPIN HYDROCHLORIDE [Concomitant]

REACTIONS (3)
  - DRUG WITHDRAWAL SYNDROME [None]
  - INTENTIONAL SELF-INJURY [None]
  - SUICIDAL IDEATION [None]
